FAERS Safety Report 13529129 (Version 1)
Quarter: 2017Q2

REPORT INFORMATION
  Report Type: Spontaneous
  Country: US (occurrence: US)
  Receive Date: 20170509
  Receipt Date: 20170509
  Transmission Date: 20170830
  Serious: No
  Sender: FDA-Public Use
  Company Number: US-ROCHE-GNE302360

PATIENT
  Sex: Female

DRUGS (3)
  1. ARTHRITIS MEDICATION NOS [Concomitant]
     Indication: ARTHRITIS
  2. XOLAIR [Suspect]
     Active Substance: OMALIZUMAB
     Indication: PRODUCT USED FOR UNKNOWN INDICATION
     Dosage: UNK
     Route: 065
     Dates: start: 20100429
  3. ANTIHYPERTENSIVE DRUG [Concomitant]
     Active Substance: UNSPECIFIED INGREDIENT
     Indication: HYPERTENSION

REACTIONS (3)
  - Anxiety [Unknown]
  - Neck pain [None]
  - Dysphonia [None]
